FAERS Safety Report 15890718 (Version 3)
Quarter: 2019Q4

REPORT INFORMATION
  Report Type: Report from Study
  Country: US (occurrence: US)
  Receive Date: 20190130
  Receipt Date: 20191126
  Transmission Date: 20200122
  Serious: Yes (Hospitalization)
  Sender: FDA-Public Use
  Company Number: US-ACTELION-A-NJ2018-182207

PATIENT
  Age: 71 Year
  Sex: Female
  Weight: 50.79 kg

DRUGS (5)
  1. VENTAVIS [Suspect]
     Active Substance: ILOPROST
     Dosage: 5.0 MCG, 6 TIMES DAILY
     Route: 055
  2. TADALAFIL. [Suspect]
     Active Substance: TADALAFIL
     Indication: PRODUCT USED FOR UNKNOWN INDICATION
     Route: 065
  3. COUMADIN [Concomitant]
     Active Substance: WARFARIN SODIUM
  4. LETAIRIS [Concomitant]
     Active Substance: AMBRISENTAN
  5. VENTAVIS [Suspect]
     Active Substance: ILOPROST
     Indication: PULMONARY HYPERTENSION
     Dosage: 5.0 MCG, 6 TO 9 TIMES PER DAY
     Route: 055

REACTIONS (13)
  - Allergy to vaccine [Unknown]
  - Fatigue [Unknown]
  - Muscle spasms [Unknown]
  - Sleep disorder [Unknown]
  - Gait disturbance [Unknown]
  - Malaise [Unknown]
  - Dyspnoea [Unknown]
  - Chest pain [Unknown]
  - Palpitations [Unknown]
  - Dyspnoea exertional [Unknown]
  - Night sweats [Unknown]
  - Pulmonary pain [Unknown]
  - Gastrooesophageal reflux disease [Unknown]

NARRATIVE: CASE EVENT DATE: 20190116
